FAERS Safety Report 8886208 (Version 1)
Quarter: 2012Q4

REPORT INFORMATION
  Report Type: 
  Country: US (occurrence: US)
  Receive Date: 20121105
  Receipt Date: 20121105
  Transmission Date: 20130627
  Serious: No
  Sender: FDA-Public Use
  Company Number: US-PFIZER INC-2012272210

PATIENT
  Age: 56 Year
  Sex: Male

DRUGS (5)
  1. DEPO-TESTOSTERONE [Suspect]
     Indication: TESTOSTERONE LOW
     Dosage: 200 mg, weekly
     Dates: start: 20121002
  2. LAMISIL [Concomitant]
     Dosage: UNK
  3. ARIMIDEX [Concomitant]
     Dosage: UNK
  4. PRAVACHOL [Concomitant]
     Dosage: 20 mg, UNK
  5. LISINOPRIL W/HYDROCHLOROTHIAZIDE [Concomitant]
     Dosage: 20/12.5 mg, UNK

REACTIONS (1)
  - Injection site rash [Recovered/Resolved]
